FAERS Safety Report 5306579-X (Version None)
Quarter: 2007Q2

REPORT INFORMATION
  Report Type: 
  Country: None (occurrence: None)
  Receive Date: 20070424
  Receipt Date: 20070412
  Transmission Date: 20071010
  Serious: Yes (Other)
  Sender: FDA-Public Use
  Company Number: US-PFIZER INC-2007030920

PATIENT
  Sex: Female
  Weight: 52.272 kg

DRUGS (1)
  1. CHANTIX [Suspect]
     Indication: OFF LABEL USE
     Dates: start: 20070326, end: 20070404

REACTIONS (9)
  - CHILLS [None]
  - CYSTITIS [None]
  - DIARRHOEA [None]
  - ERUCTATION [None]
  - FLATULENCE [None]
  - FLUID RETENTION [None]
  - IMPAIRED WORK ABILITY [None]
  - INFLUENZA [None]
  - NAUSEA [None]
